FAERS Safety Report 17444184 (Version 1)
Quarter: 2020Q1

REPORT INFORMATION
  Report Type: Spontaneous
  Country: IT (occurrence: IT)
  Receive Date: 20200221
  Receipt Date: 20200221
  Transmission Date: 20200409
  Serious: Yes (Other)
  Sender: FDA-Public Use
  Company Number: IT-SA-2020SA044506

PATIENT
  Age: 49 Year
  Sex: Female
  Weight: 64 kg

DRUGS (1)
  1. FERLIXIT [Suspect]
     Active Substance: SODIUM FERRIC GLUCONATE COMPLEX
     Indication: ANAEMIA MACROCYTIC
     Dosage: 62.5 MG, QCY
     Route: 042
     Dates: start: 20191109, end: 20200121

REACTIONS (4)
  - Hypertensive crisis [Recovered/Resolved]
  - Hyperhidrosis [Recovered/Resolved]
  - Malaise [Recovered/Resolved]
  - Abdominal pain [Recovered/Resolved]

NARRATIVE: CASE EVENT DATE: 20200121
